FAERS Safety Report 10340006 (Version 1)
Quarter: 2014Q3

REPORT INFORMATION
  Report Type: Spontaneous
  Country: US (occurrence: None)
  Receive Date: 20140722
  Receipt Date: 20140722
  Transmission Date: 20150326
  Serious: Yes (Hospitalization, Other)
  Sender: FDA-Public Use
  Company Number: IMP_07734_2014

PATIENT
  Age: 65 Year
  Sex: Female
  Weight: 85 kg

DRUGS (14)
  1. CENTRUM [Concomitant]
     Active Substance: VITAMINS
  2. AMITRIPTYLINE [Concomitant]
     Active Substance: AMITRIPTYLINE
  3. BISACODYL. [Concomitant]
     Active Substance: BISACODYL
  4. PAROXETINE [Concomitant]
     Active Substance: PAROXETINE\PAROXETINE HYDROCHLORIDE
  5. METFORMIN [Concomitant]
     Active Substance: METFORMIN HYDROCHLORIDE
  6. CALCIUM CARBONATE/VITAMIN D3 [Concomitant]
  7. WARFARIN [Suspect]
     Active Substance: WARFARIN
     Indication: ATRIAL FIBRILLATION
  8. WARFARIN [Suspect]
     Active Substance: WARFARIN
     Indication: CEREBROVASCULAR ACCIDENT
  9. BOTULINUM TOXIN [Concomitant]
     Active Substance: BOTULINUM TOXIN TYPE A
  10. SIMVASTATIN. [Concomitant]
     Active Substance: SIMVASTATIN
  11. DIVALPROEX SODIUM. [Suspect]
     Active Substance: DIVALPROEX SODIUM
     Indication: PROPHYLAXIS
  12. IRBESARTAN. [Concomitant]
     Active Substance: IRBESARTAN
  13. DOCUSATE SODIUM. [Concomitant]
     Active Substance: DOCUSATE SODIUM
  14. DIGOXIN. [Concomitant]
     Active Substance: DIGOXIN

REACTIONS (5)
  - International normalised ratio increased [None]
  - Fatigue [None]
  - Cardiac failure [None]
  - Drug interaction [None]
  - Blood pressure increased [None]
